FAERS Safety Report 13504169 (Version 1)
Quarter: 2017Q2

REPORT INFORMATION
  Report Type: Spontaneous
  Country: US (occurrence: US)
  Receive Date: 20170502
  Receipt Date: 20170502
  Transmission Date: 20170830
  Serious: Yes (Hospitalization)
  Sender: FDA-Public Use
  Company Number: None

PATIENT
  Age: 72 Year
  Sex: Male
  Weight: 94.03 kg

DRUGS (1)
  1. RIVAROXABAN [Suspect]
     Active Substance: RIVAROXABAN
     Indication: ATRIAL FIBRILLATION
     Route: 048
     Dates: start: 20160601, end: 20170215

REACTIONS (7)
  - Alcohol use [None]
  - Musculoskeletal pain [None]
  - Headache [None]
  - Head injury [None]
  - Subdural haemorrhage [None]
  - Dizziness [None]
  - Fall [None]

NARRATIVE: CASE EVENT DATE: 20170215
